FAERS Safety Report 11272339 (Version 1)
Quarter: 2015Q3

REPORT INFORMATION
  Report Type: Spontaneous
  Country: US (occurrence: None)
  Receive Date: 20150713
  Receipt Date: 20150713
  Transmission Date: 20151125
  Serious: Yes (Life-Threatening, Hospitalization, Disabling)
  Sender: FDA-Public Use
  Company Number: None

PATIENT
  Age: 25 Year
  Sex: Male
  Weight: 102.06 kg

DRUGS (16)
  1. GABAPENTIN. [Concomitant]
     Active Substance: GABAPENTIN
  2. PREDNISONE. [Concomitant]
     Active Substance: PREDNISONE
  3. DURAGESIC [Concomitant]
     Active Substance: FENTANYL
  4. APIABAN [Concomitant]
  5. ENTYVIO [Suspect]
     Active Substance: VEDOLIZUMAB
     Indication: CROHN^S DISEASE
     Dosage: GIVEN INTO/UNDER THE SKIN
     Dates: start: 20150327, end: 20150410
  6. VANCOMYCIN [Concomitant]
     Active Substance: VANCOMYCIN
  7. CEFEPINE [Concomitant]
  8. FLAGYL [Concomitant]
     Active Substance: METRONIDAZOLE\METRONIDAZOLE HYDROCHLORIDE
  9. MAGNESIUM OXIDE. [Concomitant]
     Active Substance: MAGNESIUM OXIDE
  10. VITAMIN D2 [Concomitant]
     Active Substance: ERGOCALCIFEROL
  11. PANTOPRAZOLE [Concomitant]
     Active Substance: PANTOPRAZOLE SODIUM
  12. DULOXETINE. [Concomitant]
     Active Substance: DULOXETINE
  13. MIRALAX WAS ONLY ON PREDNISONE [Concomitant]
  14. BACLOFEN. [Concomitant]
     Active Substance: BACLOFEN
  15. HYDROMORPHONE [Concomitant]
     Active Substance: HYDROMORPHONE
  16. PROMETHAZINE [Concomitant]
     Active Substance: PROMETHAZINE\PROMETHAZINE HYDROCHLORIDE

REACTIONS (11)
  - Sinusitis [None]
  - Meningitis [None]
  - Thrombosis [None]
  - Conductive deafness [None]
  - Deafness unilateral [None]
  - Osteomyelitis [None]
  - Sepsis [None]
  - Malnutrition [None]
  - Abscess [None]
  - Pain [None]
  - Immunosuppression [None]

NARRATIVE: CASE EVENT DATE: 20150505
